FAERS Safety Report 19662384 (Version 1)
Quarter: 2021Q3

REPORT INFORMATION
  Report Type: Spontaneous
  Country: US (occurrence: US)
  Receive Date: 20210805
  Receipt Date: 20210805
  Transmission Date: 20211014
  Serious: Yes (Other)
  Sender: FDA-Public Use
  Company Number: US-ALLERGAN-2127360US

PATIENT
  Sex: Female

DRUGS (1)
  1. PROGESTERONE UNK [Suspect]
     Active Substance: PROGESTERONE
     Indication: PREMATURE DELIVERY
     Route: 067

REACTIONS (3)
  - Pregnancy [Unknown]
  - Off label use [Unknown]
  - Premature labour [Unknown]
